FAERS Safety Report 5531691-X (Version None)
Quarter: 2007Q4

REPORT INFORMATION
  Report Type: 
  Country: None (occurrence: None)
  Receive Date: 20071203
  Receipt Date: 20071123
  Transmission Date: 20080405
  Serious: No
  Sender: FDA-Public Use
  Company Number: CZ-BAXTER-2007BH009237

PATIENT
  Age: 2 Year
  Sex: Female

DRUGS (1)
  1. GAMMAGARD LIQUID [Suspect]
     Indication: IDIOPATHIC THROMBOCYTOPENIC PURPURA
     Dosage: DOSE UNIT:UNKNOWN
     Route: 042
     Dates: start: 20071121, end: 20071121

REACTIONS (3)
  - CHILLS [None]
  - PYREXIA [None]
  - TACHYCARDIA [None]
